FAERS Safety Report 19007352 (Version 1)
Quarter: 2021Q1

REPORT INFORMATION
  Report Type: Spontaneous
  Country: US (occurrence: US)
  Receive Date: 20210315
  Receipt Date: 20210315
  Transmission Date: 20210420
  Serious: No
  Sender: FDA-Public Use
  Company Number: None

PATIENT
  Age: 27 Year
  Sex: Female
  Weight: 85.5 kg

DRUGS (5)
  1. ETONOGESTREL/ETHINYL ESTRADIOL [Suspect]
     Active Substance: ETHINYL ESTRADIOL\ETONOGESTREL
  2. HAIR, SKIN, AND NAILS VITAMINS [Concomitant]
  3. NUVARING [Suspect]
     Active Substance: ETHINYL ESTRADIOL\ETONOGESTREL
     Indication: CONTRACEPTION
     Dosage: ?          QUANTITY:1 RING;OTHER FREQUENCY:3 WEEKS;?
     Route: 067
     Dates: start: 20210226, end: 20210306
  4. IRON PILLS WITH VITAMIN C [Concomitant]
  5. MIRENA [Suspect]
     Active Substance: LEVONORGESTREL

REACTIONS (3)
  - Nausea [None]
  - Complication associated with device [None]
  - Alopecia [None]

NARRATIVE: CASE EVENT DATE: 20210305
